FAERS Safety Report 8998408 (Version 3)
Quarter: 2013Q1

REPORT INFORMATION
  Report Type: Report from Study
  Country: JP (occurrence: JP)
  Receive Date: 20130103
  Receipt Date: 20130130
  Transmission Date: 20140127
  Serious: Yes (Hospitalization)
  Sender: FDA-Public Use
  Company Number: JP-BAXTER-2012BAX029092

PATIENT
  Age: 41 Year
  Sex: Female
  Weight: 41.8 kg

DRUGS (6)
  1. CYCLOPHOSPHAMIDE FOR INJECTION, USP [Suspect]
     Indication: HER-2 POSITIVE BREAST CANCER
     Route: 042
     Dates: start: 20120907
  2. CYCLOPHOSPHAMIDE FOR INJECTION, USP [Suspect]
     Route: 042
     Dates: start: 20121109
  3. EPIRUBICIN [Suspect]
     Indication: HER-2 POSITIVE BREAST CANCER
     Route: 065
     Dates: start: 20120907
  4. EPIRUBICIN [Suspect]
     Route: 065
     Dates: start: 20121109
  5. FLUOROURACIL [Suspect]
     Indication: HER-2 POSITIVE BREAST CANCER
     Route: 065
     Dates: start: 20120907
  6. FLUOROURACIL [Suspect]
     Route: 065
     Dates: start: 20121109

REACTIONS (1)
  - Haemorrhoidal haemorrhage [Recovered/Resolved]
